FAERS Safety Report 8483013-2 (Version None)
Quarter: 2012Q3

REPORT INFORMATION
  Report Type: 
  Country: None (occurrence: None)
  Receive Date: 20120702
  Receipt Date: 20120626
  Transmission Date: 20120928
  Serious: Yes (Hospitalization)
  Sender: FDA-Public Use
  Company Number: CH-PFIZER INC-2012153237

PATIENT
  Age: 73 Year
  Sex: Female
  Weight: 44.6 kg

DRUGS (8)
  1. PANTOPRAZOLE [Interacting]
     Dosage: 40 MG, 1X/DAY
     Route: 048
  2. AVELOX [Concomitant]
     Dosage: 40 MG, 1X/DAY
     Route: 048
  3. FLECTOR [Suspect]
     Indication: NECK PAIN
     Dosage: 1 DF, 2X/DAY
     Route: 062
     Dates: start: 20111101, end: 20111107
  4. MYAMBUTOL [Concomitant]
     Dosage: 600 MG, 1X/DAY
     Route: 048
  5. MYCOBUTIN [Interacting]
     Dosage: 300 MG, 1X/DAY
     Route: 048
  6. CLARITHROMYCIN [Concomitant]
     Dosage: 250 MG, 2X/DAY
     Route: 048
  7. LORAZEPAM [Concomitant]
     Dosage: 1 MG, 1X/DAY
     Route: 048
  8. AMIKACIN [Concomitant]
     Dosage: 650 MG, THREE TIMES PER WEEK
     Route: 041

REACTIONS (4)
  - DYSPEPSIA [None]
  - MELAENA [None]
  - DRUG INTERACTION [None]
  - ABDOMINAL PAIN [None]
